FAERS Safety Report 17893527 (Version 1)
Quarter: 2020Q2

REPORT INFORMATION
  Report Type: Spontaneous
  Country: CA (occurrence: CA)
  Receive Date: 20200615
  Receipt Date: 20200615
  Transmission Date: 20200714
  Serious: Yes (Other)
  Sender: FDA-Public Use
  Company Number: CA-BEH-2020118348

PATIENT
  Age: 62 Year
  Sex: Male

DRUGS (1)
  1. ALBUREX [Suspect]
     Active Substance: ALBUMIN HUMAN
     Dosage: 100 MILLILITER, TOT
     Route: 065
     Dates: start: 20200603, end: 20200603

REACTIONS (7)
  - Wheezing [Unknown]
  - Tachycardia [Unknown]
  - Cardiac disorder [Unknown]
  - Dyspnoea [Unknown]
  - Transfusion-related acute lung injury [Unknown]
  - Oxygen saturation decreased [Unknown]
  - Hypotension [Unknown]

NARRATIVE: CASE EVENT DATE: 20200603
